FAERS Safety Report 22022072 (Version 1)
Quarter: 2023Q1

REPORT INFORMATION
  Report Type: Spontaneous
  Country: US (occurrence: US)
  Receive Date: 20230222
  Receipt Date: 20230222
  Transmission Date: 20230418
  Serious: No
  Sender: FDA-Public Use
  Company Number: US-TEVA-2023-US-2853387

PATIENT
  Age: 43 Year
  Sex: Male

DRUGS (2)
  1. LORAZEPAM [Suspect]
     Active Substance: LORAZEPAM
     Indication: Anxiety
     Route: 065
     Dates: start: 2022
  2. PAXIL [Concomitant]
     Active Substance: PAROXETINE HYDROCHLORIDE
     Indication: Product used for unknown indication
     Route: 065

REACTIONS (9)
  - Abnormal dreams [Unknown]
  - Hyperhidrosis [Unknown]
  - Psychomotor hyperactivity [Unknown]
  - Feeling hot [Unknown]
  - Depressed mood [Unknown]
  - Withdrawal syndrome [Unknown]
  - Product quality issue [Unknown]
  - Hangover [Unknown]
  - Stress [Unknown]

NARRATIVE: CASE EVENT DATE: 20230101
